FAERS Safety Report 4766055-X (Version None)
Quarter: 2005Q3

REPORT INFORMATION
  Report Type: 
  Country: None (occurrence: None)
  Receive Date: 20050912
  Receipt Date: 20050905
  Transmission Date: 20060218
  Serious: Yes (Death)
  Sender: FDA-Public Use
  Company Number: HCM-0113

PATIENT
  Age: 74 Year
  Sex: Male

DRUGS (9)
  1. TOPOTECAN [Suspect]
     Dosage: 1.1MG PER DAY
     Route: 065
     Dates: start: 20050302, end: 20050304
  2. AMRUBICIN HYDROCHLORIDE [Suspect]
     Indication: DRUG USE FOR UNKNOWN INDICATION
     Dosage: 50MG PER DAY
     Route: 042
     Dates: start: 20050302, end: 20050304
  3. TRIFLUID [Concomitant]
     Indication: DRUG USE FOR UNKNOWN INDICATION
     Dosage: 500ML PER DAY
     Dates: start: 20050302, end: 20050407
  4. METOCLOPRAMIDE [Concomitant]
     Dosage: 10MG PER DAY
     Route: 042
     Dates: start: 20050302, end: 20050318
  5. LENOGRASTIM [Concomitant]
     Indication: DRUG USE FOR UNKNOWN INDICATION
     Dosage: 1AMP PER DAY
     Route: 058
     Dates: start: 20050305, end: 20050317
  6. NEO-MINOPHAGEN C [Concomitant]
     Indication: DRUG USE FOR UNKNOWN INDICATION
     Dosage: 20ML PER DAY
     Route: 042
     Dates: start: 20050311, end: 20050316
  7. FAMOTIDINE [Concomitant]
     Indication: DRUG USE FOR UNKNOWN INDICATION
     Dosage: 1AMP PER DAY
     Route: 042
     Dates: start: 20050312, end: 20050322
  8. BETAMIPRON + PANIPENEM [Concomitant]
     Indication: DRUG USE FOR UNKNOWN INDICATION
     Dosage: 1.5G PER DAY
     Route: 042
     Dates: start: 20050312, end: 20050322
  9. GLUCOSE-ACETATED RINGER'S SOLUTION [Concomitant]
     Indication: DRUG USE FOR UNKNOWN INDICATION
     Dosage: 500ML PER DAY
     Route: 065
     Dates: start: 20050312, end: 20050407

REACTIONS (8)
  - ANAEMIA [None]
  - HYPOALBUMINAEMIA [None]
  - HYPOCHLORAEMIA [None]
  - HYPONATRAEMIA [None]
  - HYPOPROTEINAEMIA [None]
  - LEUKOPENIA [None]
  - LUNG NEOPLASM MALIGNANT [None]
  - PLATELET COUNT DECREASED [None]
